FAERS Safety Report 5513245-4 (Version None)
Quarter: 2007Q4

REPORT INFORMATION
  Report Type: 
  Country: None (occurrence: None)
  Receive Date: 20071112
  Receipt Date: 20071030
  Transmission Date: 20080405
  Serious: Yes (Hospitalization)
  Sender: FDA-Public Use
  Company Number: KE-ELI_LILLY_AND_COMPANY-KE200706005130

PATIENT
  Age: 14 Year
  Sex: Female

DRUGS (3)
  1. STRATTERA [Suspect]
     Indication: ATTENTION DEFICIT/HYPERACTIVITY DISORDER
     Dosage: UNK, DAILY (1/D)
     Route: 048
  2. STRATTERA [Suspect]
     Dosage: 60 MG, UNKNOWN
     Route: 048
  3. STRATTERA [Suspect]
     Dosage: 25 MG, 2/D
     Route: 048

REACTIONS (4)
  - ANOREXIA [None]
  - DIZZINESS [None]
  - OVERDOSE [None]
  - SUICIDE ATTEMPT [None]
